FAERS Safety Report 8592687-7 (Version None)
Quarter: 2012Q3

REPORT INFORMATION
  Report Type: 
  Country: None (occurrence: None)
  Receive Date: 20120814
  Receipt Date: 20120803
  Transmission Date: 20120928
  Serious: Yes (Hospitalization, Other)
  Sender: FDA-Public Use
  Company Number: US-ELI_LILLY_AND_COMPANY-US201208001259

PATIENT
  Sex: Female
  Weight: 86.168 kg

DRUGS (11)
  1. LASIX [Concomitant]
     Indication: DIURETIC THERAPY
     Dosage: UNK
  2. BYETTA [Suspect]
     Indication: INSULIN-REQUIRING TYPE 2 DIABETES MELLITUS
     Dosage: 5 UG, BID
     Dates: end: 20120802
  3. VYTORIN [Concomitant]
     Dosage: UNK
  4. VITAMIN B-12 [Concomitant]
     Dosage: UNK, QD
     Route: 048
  5. ASCORBIC ACID [Concomitant]
     Dosage: UNK, QD
  6. CIPROFLOXACIN HCL [Concomitant]
  7. LISINOPRIL [Concomitant]
     Indication: HYPERTENSION
     Dosage: UNK
  8. LOPRESSOR [Concomitant]
     Indication: HYPERTENSION
     Dosage: UNK
  9. SYMBICORT [Concomitant]
     Indication: ASTHMA
     Dosage: UNK
  10. LANTUS [Concomitant]
     Indication: TYPE 2 DIABETES MELLITUS
     Dosage: 3 UNK, UNK
  11. VITAMIN D [Concomitant]
     Dosage: 1000 U, BID
     Route: 048

REACTIONS (8)
  - UPPER LIMB FRACTURE [None]
  - WEIGHT INCREASED [None]
  - RENAL FAILURE ACUTE [None]
  - BLOOD GLUCOSE INCREASED [None]
  - FATIGUE [None]
  - INTENTIONAL DRUG MISUSE [None]
  - DECREASED APPETITE [None]
  - PULMONARY EMBOLISM [None]
